FAERS Safety Report 8056474-0 (Version None)
Quarter: 2012Q1

REPORT INFORMATION
  Report Type: 
  Country: None (occurrence: None)
  Receive Date: 20120119
  Receipt Date: 20110705
  Transmission Date: 20120608
  Serious: Yes (Hospitalization)
  Sender: FDA-Public Use
  Company Number: US-SANOFI-AVENTIS-2011SA043081

PATIENT
  Age: 54 Year
  Sex: Female
  Weight: 104.3 kg

DRUGS (3)
  1. BLINDED THERAPY [Suspect]
     Indication: OSTEOARTHRITIS
     Route: 048
     Dates: start: 20100923, end: 20110126
  2. LASIX [Suspect]
     Route: 048
     Dates: start: 20110105, end: 20110126
  3. NEXIUM [Concomitant]

REACTIONS (1)
  - RENAL FAILURE [None]
